FAERS Safety Report 25938273 (Version 1)
Quarter: 2025Q4

REPORT INFORMATION
  Report Type: Spontaneous
  Country: US (occurrence: US)
  Receive Date: 20251018
  Receipt Date: 20251018
  Transmission Date: 20260118
  Serious: Yes (Other)
  Sender: SANOFI AVENTIS
  Company Number: US-SANOFI-02688847

PATIENT
  Age: 62 Year
  Sex: Female

DRUGS (4)
  1. KEVZARA [Suspect]
     Active Substance: SARILUMAB
     Indication: Polymyalgia rheumatica
     Dosage: 200 MG, QOW
     Dates: start: 20241101
  2. OLANZAPINE [Concomitant]
     Active Substance: OLANZAPINE
  3. ZYPREXA [Concomitant]
     Active Substance: OLANZAPINE
     Dosage: UNK
     Dates: start: 20251014
  4. SEROQUEL [Concomitant]
     Active Substance: QUETIAPINE FUMARATE

REACTIONS (14)
  - Neuropathy peripheral [Unknown]
  - Vagus nerve disorder [Unknown]
  - Tremor [Unknown]
  - Nervous system disorder [Unknown]
  - Sleep disorder [Unknown]
  - Hypoaesthesia [Unknown]
  - Vibratory sense increased [Unknown]
  - Gait disturbance [Unknown]
  - Muscular weakness [Unknown]
  - Condition aggravated [Unknown]
  - Migraine [Unknown]
  - Psychiatric symptom [Unknown]
  - Condition aggravated [Unknown]
  - COVID-19 [Unknown]

NARRATIVE: CASE EVENT DATE: 20250825
